FAERS Safety Report 24115930 (Version 2)
Quarter: 2024Q3

REPORT INFORMATION
  Report Type: Spontaneous
  Country: HR (occurrence: HR)
  Receive Date: 20240722
  Receipt Date: 20240813
  Transmission Date: 20241016
  Serious: Yes (Other)
  Sender: NOVARTIS
  Company Number: HR-002147023-NVSC2024HR148862

PATIENT
  Age: 78 Year
  Sex: Male

DRUGS (2)
  1. LEQVIO [Suspect]
     Active Substance: INCLISIRAN SODIUM
     Indication: Rhabdomyolysis
     Dosage: UNK (1ST DOSE)
     Route: 058
     Dates: start: 20240718, end: 20240718
  2. LEQVIO [Suspect]
     Active Substance: INCLISIRAN SODIUM
     Indication: Coronary artery disease

REACTIONS (2)
  - Anaphylactic reaction [Recovering/Resolving]
  - Off label use [Unknown]

NARRATIVE: CASE EVENT DATE: 20240718
